FAERS Safety Report 15618685 (Version 4)
Quarter: 2018Q4

REPORT INFORMATION
  Report Type: Spontaneous
  Country: JP (occurrence: JP)
  Receive Date: 20181114
  Receipt Date: 20181123
  Transmission Date: 20190205
  Serious: Yes (Other)
  Sender: FDA-Public Use
  Company Number: JP-MITSUBISHI TANABE PHARMA CORPORATION-MTPC2018-0030836

PATIENT
  Age: 74 Year
  Sex: Male

DRUGS (6)
  1. ANTIARRHYTHMIC AGENTS [Concomitant]
     Active Substance: UNSPECIFIED INGREDIENT
     Indication: HYPERTENSION
     Route: 048
  2. REMIFENTANIL HYDROCHLORIDE. [Concomitant]
     Active Substance: REMIFENTANIL HYDROCHLORIDE
     Indication: GENERAL ANAESTHESIA
     Route: 041
  3. FOSPHENYTOIN SODIUM HYDRATE [Suspect]
     Active Substance: FOSPHENYTOIN SODIUM HEPTAHYDRATE
     Indication: CEREBROVASCULAR ACCIDENT PROPHYLAXIS
     Route: 041
  4. PROPOFOL. [Concomitant]
     Active Substance: PROPOFOL
     Indication: GENERAL ANAESTHESIA
     Route: 041
  5. EDARAVONE [Suspect]
     Active Substance: EDARAVONE
     Indication: CEREBROVASCULAR ACCIDENT PROPHYLAXIS
     Route: 041
  6. NICARDIPINE HYDROCHLORIDE. [Concomitant]
     Active Substance: NICARDIPINE HYDROCHLORIDE
     Indication: PROCEDURAL HYPERTENSION
     Dosage: ADEQUATE DOSE AS NEEDED
     Route: 042

REACTIONS (1)
  - Bradycardia [Recovered/Resolved]
